FAERS Safety Report 4860031-4 (Version None)
Quarter: 2005Q4

REPORT INFORMATION
  Report Type: 
  Country: None (occurrence: None)
  Receive Date: 20051219
  Receipt Date: 20051208
  Transmission Date: 20060501
  Serious: Yes (Death, Hospitalization)
  Sender: FDA-Public Use
  Company Number: CA-MERCK-0512CAN00067

PATIENT
  Age: 49 Year
  Sex: Female

DRUGS (15)
  1. CANCIDAS [Suspect]
     Indication: ABDOMINAL INFECTION
     Route: 041
  2. CANCIDAS [Suspect]
     Route: 041
  3. CANCIDAS [Suspect]
     Indication: CANDIDIASIS
     Route: 041
  4. CANCIDAS [Suspect]
     Route: 041
  5. AMPICILLIN [Concomitant]
     Indication: GASTRIC VOLVULUS
     Route: 065
  6. AMPICILLIN [Concomitant]
     Indication: GASTRIC PERFORATION
     Route: 065
  7. CIPROFLOXACIN [Concomitant]
     Indication: GASTRIC VOLVULUS
     Route: 065
  8. CIPROFLOXACIN [Concomitant]
     Indication: GASTRIC PERFORATION
     Route: 065
  9. METRONIDAZOLE [Concomitant]
     Indication: GASTRIC VOLVULUS
     Route: 065
  10. METRONIDAZOLE [Concomitant]
     Indication: GASTRIC PERFORATION
     Route: 065
  11. PIPERACILLIN SODIUM AND TAZOBACTAM SODIUM [Concomitant]
     Indication: LUNG INFILTRATION
     Route: 065
  12. PIPERACILLIN SODIUM AND TAZOBACTAM SODIUM [Concomitant]
     Indication: PLEURAL EFFUSION
     Route: 065
  13. FLUCONAZOLE [Concomitant]
     Indication: FUNGAL INFECTION
     Route: 042
  14. AMPHOTERICIN B [Concomitant]
     Indication: GASTROINTESTINAL CANDIDIASIS
     Route: 042
  15. MEPREDNISONE [Concomitant]
     Route: 065

REACTIONS (4)
  - CEREBRAL DISORDER [None]
  - DEATH [None]
  - DRUG INEFFECTIVE [None]
  - RESPIRATORY MONILIASIS [None]
